FAERS Safety Report 9608724 (Version 1)
Quarter: 2013Q4

REPORT INFORMATION
  Report Type: Spontaneous
  Country: GB (occurrence: GB)
  Receive Date: 20131009
  Receipt Date: 20131009
  Transmission Date: 20140711
  Serious: Yes (Death)
  Sender: FDA-Public Use
  Company Number: GB-PFIZER INC-2013285755

PATIENT
  Age: 57 Year
  Sex: Male

DRUGS (3)
  1. SUNITINIB MALATE [Suspect]
     Indication: METASTATIC RENAL CELL CARCINOMA
     Dosage: 50 MG, 1X/DAY, 4/2 SCHEDULE
     Dates: start: 200704, end: 200806
  2. SUNITINIB MALATE [Suspect]
     Dosage: 37.5 MG, 1X/DAY
     Dates: start: 200808, end: 201011
  3. SUNITINIB MALATE [Suspect]
     Dosage: 25 MG, 1X/DAY, 4/2 SCHEDULE

REACTIONS (8)
  - Death [Fatal]
  - Disease progression [Unknown]
  - Metastatic renal cell carcinoma [Unknown]
  - Skin toxicity [Unknown]
  - Diarrhoea [Unknown]
  - Hypothyroidism [Unknown]
  - Pleural effusion [Unknown]
  - Hypertension [Unknown]
